FAERS Safety Report 21322896 (Version 2)
Quarter: 2022Q4

REPORT INFORMATION
  Report Type: Spontaneous
  Country: KR (occurrence: KR)
  Receive Date: 20220912
  Receipt Date: 20221206
  Transmission Date: 20230113
  Serious: Yes (Hospitalization)
  Sender: FDA-Public Use
  Company Number: KR-TAKEDA-2022TUS060646

PATIENT
  Sex: Male

DRUGS (2)
  1. LEUPLIN [Suspect]
     Active Substance: LEUPROLIDE ACETATE
     Indication: Prostate cancer
     Dosage: 22.5 MILLIGRAM, Q3MONTHS START DATE 2022
     Route: 065
  2. LEUPLIN [Suspect]
     Active Substance: LEUPROLIDE ACETATE
     Dosage: 22.5 MILLIGRAM, Q3MONTHS
     Route: 065
     Dates: start: 202205

REACTIONS (2)
  - Mobility decreased [Unknown]
  - Movement disorder [Not Recovered/Not Resolved]
